FAERS Safety Report 20885164 (Version 1)
Quarter: 2022Q2

REPORT INFORMATION
  Report Type: Spontaneous
  Country: JP (occurrence: None)
  Receive Date: 20220527
  Receipt Date: 20220527
  Transmission Date: 20220720
  Serious: Yes (Hospitalization, Other)
  Sender: FDA-Public Use
  Company Number: 2022A164523

PATIENT
  Sex: Male

DRUGS (2)
  1. SEROQUEL [Suspect]
     Active Substance: QUETIAPINE FUMARATE
     Indication: Poriomania
     Dosage: 25 MG, ONCE DAILY AT BEDTIME
     Route: 048
     Dates: start: 2017, end: 202108
  2. SEROQUEL [Suspect]
     Active Substance: QUETIAPINE FUMARATE
     Indication: Poriomania
     Route: 048
     Dates: start: 20220415

REACTIONS (4)
  - Dementia [Unknown]
  - Marasmus [Unknown]
  - Glucose tolerance impaired [Unknown]
  - Off label use [Unknown]

NARRATIVE: CASE EVENT DATE: 20170101
